FAERS Safety Report 7400951-X (Version None)
Quarter: 2011Q2

REPORT INFORMATION
  Report Type: 
  Country: None (occurrence: None)
  Receive Date: 20110407
  Receipt Date: 20110404
  Transmission Date: 20111010
  Serious: Yes (Other)
  Sender: FDA-Public Use
  Company Number: IT-TEVA-274816ISR

PATIENT
  Sex: Female

DRUGS (3)
  1. DEXAMETHASONE SODIUM PHOSPHATE [Concomitant]
     Route: 042
  2. ONDANSETRON [Concomitant]
     Route: 042
  3. CARBOPLATIN [Suspect]
     Indication: OVARIAN CANCER
     Route: 042
     Dates: start: 20110209, end: 20110302

REACTIONS (2)
  - LOSS OF CONSCIOUSNESS [None]
  - PRURITUS GENERALISED [None]
